FAERS Safety Report 24423452 (Version 1)
Quarter: 2024Q4

REPORT INFORMATION
  Report Type: Spontaneous
  Country: US (occurrence: US)
  Receive Date: 20241010
  Receipt Date: 20241010
  Transmission Date: 20250114
  Serious: Yes (Disabling)
  Sender: SANDOZ
  Company Number: US-SANDOZ-SDZ2024US085657

PATIENT
  Sex: Female

DRUGS (1)
  1. DOCETAXEL [Suspect]
     Active Substance: DOCETAXEL
     Indication: Product used for unknown indication
     Dosage: UNK
     Route: 065
     Dates: start: 20220603, end: 20240705

REACTIONS (1)
  - Lacrimation increased [Unknown]
